FAERS Safety Report 6667692-8 (Version None)
Quarter: 2010Q2

REPORT INFORMATION
  Report Type: 
  Country: None (occurrence: None)
  Receive Date: 20100405
  Receipt Date: 20100331
  Transmission Date: 20101027
  Serious: Yes (Hospitalization)
  Sender: FDA-Public Use
  Company Number: GB-BRISTOL-MYERS SQUIBB COMPANY-15045248

PATIENT

DRUGS (1)
  1. REYATAZ [Suspect]

REACTIONS (2)
  - BRAIN OEDEMA [None]
  - MALIGNANT HYPERTENSION [None]
